FAERS Safety Report 4332542-1 (Version None)
Quarter: 2004Q1

REPORT INFORMATION
  Report Type: 
  Country: None (occurrence: None)
  Receive Date: 20040330
  Receipt Date: 20040317
  Transmission Date: 20041129
  Serious: Yes (Other)
  Sender: FDA-Public Use
  Company Number: ES-JNJFOC-20040304164

PATIENT
  Age: 63 Year
  Sex: Female

DRUGS (5)
  1. REMICADE [Suspect]
     Indication: RHEUMATOID ARTHRITIS
     Dosage: 3 MG/KG, INTRAVENOUS
     Route: 042
     Dates: start: 20030131, end: 20030930
  2. METHOTREXATE [Concomitant]
  3. LEDERFOLIN (CALCIUM FOLINATE) [Concomitant]
  4. NAPROXEN [Concomitant]
  5. METHYLPREDNISOLONE [Concomitant]

REACTIONS (2)
  - CYTOMEGALOVIRUS GASTRITIS [None]
  - DRUG INEFFECTIVE [None]
